FAERS Safety Report 7137743-5 (Version None)
Quarter: 2010Q4

REPORT INFORMATION
  Report Type: 
  Country: None (occurrence: None)
  Receive Date: 20101103
  Receipt Date: 20100112
  Transmission Date: 20110411
  Serious: Yes (Other)
  Sender: FDA-Public Use
  Company Number: US-WYE-H10528009

PATIENT
  Age: 56 Year
  Sex: Male
  Weight: 83.99 kg

DRUGS (15)
  1. EFFEXOR XR [Suspect]
     Indication: DEPRESSION
     Dosage: SEE IMAGE
     Route: 048
     Dates: start: 20070101
  2. EFFEXOR XR [Suspect]
     Indication: DEPRESSION
     Dosage: SEE IMAGE
     Route: 048
     Dates: start: 20090101
  3. NEURONTIN [Concomitant]
  4. KEPPRA [Concomitant]
  5. DEPAKOTE [Concomitant]
  6. SERTRALINE HYDROCHLORIDE [Concomitant]
  7. LAMICTAL [Concomitant]
  8. LOVENOX [Concomitant]
  9. LISINOPRIL [Concomitant]
  10. SIMVASTATIN [Concomitant]
  11. COLACE (DOCUSATE SODIUM) [Concomitant]
  12. BACLOFEN [Concomitant]
  13. TEMAZEPAM [Concomitant]
  14. LACTULOSE [Concomitant]
  15. BECONASE AQUEOUS (BECLOMETASONE DIPROPIONATE) [Concomitant]

REACTIONS (2)
  - CONVULSION [None]
  - DRUG EFFECT DECREASED [None]
